FAERS Safety Report 6880764-8 (Version None)
Quarter: 2010Q3

REPORT INFORMATION
  Report Type: 
  Country: None (occurrence: None)
  Receive Date: 20100728
  Receipt Date: 20100722
  Transmission Date: 20110219
  Serious: Yes (Hospitalization)
  Sender: FDA-Public Use
  Company Number: JP-BAYER-201013153BYL

PATIENT
  Age: 84 Year
  Sex: Female
  Weight: 58 kg

DRUGS (6)
  1. ASPIRIN [Suspect]
     Indication: VERTEBROBASILAR INSUFFICIENCY
     Dosage: TOTAL DAILY DOSE: 100 MG  UNIT DOSE: 100 MG
     Route: 048
     Dates: start: 20080101, end: 20090907
  2. MEVAN [Suspect]
     Indication: HYPERCHOLESTEROLAEMIA
     Dosage: TOTAL DAILY DOSE: 10 MG  UNIT DOSE: 10 MG
     Route: 048
     Dates: start: 20080101, end: 20090907
  3. SELBEX [Concomitant]
     Indication: GASTRITIS
     Dosage: TOTAL DAILY DOSE: 150 MG  UNIT DOSE: 50 MG
     Route: 048
     Dates: end: 20090907
  4. OHNES ST [Concomitant]
     Indication: GASTROENTERITIS
     Route: 048
     Dates: end: 20090801
  5. PURSENNID [Concomitant]
     Indication: CONSTIPATION
     Dosage: TOTAL DAILY DOSE: 24 MG  UNIT DOSE: 12 MG
     Route: 048
     Dates: end: 20090801
  6. PAZUCROSS [Concomitant]
     Indication: EOSINOPHILIC PNEUMONIA
     Route: 065
     Dates: start: 20090825, end: 20090830

REACTIONS (1)
  - EOSINOPHILIC PNEUMONIA [None]
